FAERS Safety Report 18382547 (Version 1)
Quarter: 2020Q4

REPORT INFORMATION
  Report Type: Spontaneous
  Country: NL (occurrence: NL)
  Receive Date: 20201014
  Receipt Date: 20201014
  Transmission Date: 20210114
  Serious: Yes (Life-Threatening, Hospitalization)
  Sender: FDA-Public Use
  Company Number: NL-ALLERGAN-2038703US

PATIENT
  Sex: Female
  Weight: 100 kg

DRUGS (2)
  1. CITALOPRAM HYDROBROMIDE - BP [Suspect]
     Active Substance: CITALOPRAM HYDROBROMIDE
     Indication: PRODUCT USED FOR UNKNOWN INDICATION
     Dosage: 30 MG
     Route: 065
  2. MECLOZINE/PYRIDOXINE [Interacting]
     Active Substance: MECLIZINE\PYRIDOXINE
     Indication: MORNING SICKNESS
     Dosage: 1 DF, QD
     Route: 065
     Dates: start: 201908

REACTIONS (5)
  - Renal colic [Recovered/Resolved]
  - Drug interaction [Unknown]
  - Renal papillary necrosis [Recovered/Resolved]
  - Pregnancy [Unknown]
  - Hydronephrosis [Recovered/Resolved]

NARRATIVE: CASE EVENT DATE: 20191013
